FAERS Safety Report 7862918-7 (Version None)
Quarter: 2011Q4

REPORT INFORMATION
  Report Type: 
  Country: None (occurrence: None)
  Receive Date: 20111027
  Receipt Date: 20101119
  Transmission Date: 20120403
  Serious: No
  Sender: FDA-Public Use
  Company Number: US-AMGEN-USASP2010005671

PATIENT
  Age: 16 Year
  Sex: Female

DRUGS (2)
  1. ENBREL [Suspect]
     Indication: PSORIATIC ARTHROPATHY
  2. ENBREL [Suspect]
     Indication: PSORIASIS
     Dosage: 50 MG, 2 TIMES/WK
     Dates: start: 20100701, end: 20101001

REACTIONS (7)
  - JOINT DISLOCATION [None]
  - PRURITUS [None]
  - MIGRAINE [None]
  - HYPOAESTHESIA [None]
  - SCRATCH [None]
  - SKIN CHAPPED [None]
  - SKIN HAEMORRHAGE [None]
